FAERS Safety Report 12249900 (Version 3)
Quarter: 2019Q4

REPORT INFORMATION
  Report Type: Spontaneous
  Country: US (occurrence: US)
  Receive Date: 20160408
  Receipt Date: 20191104
  Transmission Date: 20200122
  Serious: Yes (Other)
  Sender: FDA-Public Use
  Company Number: US-PFIZER INC-2016199745

PATIENT
  Age: 53 Year
  Sex: Female

DRUGS (8)
  1. LIPITOR [Suspect]
     Active Substance: ATORVASTATIN CALCIUM
     Indication: LOW DENSITY LIPOPROTEIN INCREASED
     Dosage: 10 MG, DAILY
     Route: 048
     Dates: start: 19990915, end: 20110716
  2. LOVASTATIN. [Suspect]
     Active Substance: LOVASTATIN
     Indication: LIPIDS DECREASED
  3. SIMVASTATIN. [Suspect]
     Active Substance: SIMVASTATIN
     Indication: LIPIDS DECREASED
  4. LIPITOR [Suspect]
     Active Substance: ATORVASTATIN CALCIUM
     Indication: CARDIOVASCULAR EVENT PROPHYLAXIS
  5. LIPITOR [Suspect]
     Active Substance: ATORVASTATIN CALCIUM
     Indication: BLOOD CHOLESTEROL INCREASED
  6. LIPITOR [Suspect]
     Active Substance: ATORVASTATIN CALCIUM
     Indication: LIPIDS DECREASED
  7. SIMVASTATIN. [Suspect]
     Active Substance: SIMVASTATIN
     Indication: BLOOD CHOLESTEROL DECREASED
     Dosage: 20 MG, DAILY
     Dates: start: 20110602, end: 20120529
  8. LOVASTATIN. [Suspect]
     Active Substance: LOVASTATIN
     Indication: BLOOD CHOLESTEROL DECREASED
     Dosage: 40 MG, DAILY
     Dates: start: 20150615

REACTIONS (1)
  - Type 2 diabetes mellitus [Unknown]

NARRATIVE: CASE EVENT DATE: 20011024
